FAERS Safety Report 7386106-6 (Version None)
Quarter: 2011Q1

REPORT INFORMATION
  Report Type: 
  Country: None (occurrence: None)
  Receive Date: 20110331
  Receipt Date: 20110324
  Transmission Date: 20110831
  Serious: Yes (Death)
  Sender: FDA-Public Use
  Company Number: JP-JNJFOC-20110310712

PATIENT
  Age: 61 Year
  Sex: Male

DRUGS (2)
  1. ITRIZOLE [Suspect]
     Dosage: 400-200 MG
     Route: 048
  2. ITRIZOLE [Suspect]
     Indication: BRONCHOPULMONARY ASPERGILLOSIS
     Dosage: 400-200 MG
     Route: 041

REACTIONS (2)
  - PSEUDOMONAS INFECTION [None]
  - WOUND INFECTION STAPHYLOCOCCAL [None]
